FAERS Safety Report 5928349-1 (Version None)
Quarter: 2008Q4

REPORT INFORMATION
  Report Type: 
  Country: None (occurrence: None)
  Receive Date: 20081023
  Receipt Date: 20081012
  Transmission Date: 20090506
  Serious: Yes (Hospitalization, Disabling, Other)
  Sender: FDA-Public Use
  Company Number: IL-PFIZER INC-2008073527

PATIENT
  Age: 81 Year
  Sex: Female

DRUGS (5)
  1. XALATAN [Suspect]
     Indication: GLAUCOMA
     Dates: start: 20020101
  2. WARFARIN SODIUM [Concomitant]
  3. ENALAPRIL MALEATE [Concomitant]
  4. PROPAFENONE HCL [Concomitant]
  5. OXAZEPAM [Concomitant]

REACTIONS (6)
  - BLINDNESS UNILATERAL [None]
  - DIZZINESS [None]
  - EYE PENETRATION [None]
  - FALL [None]
  - INSOMNIA [None]
  - NAUSEA [None]
